FAERS Safety Report 21459786 (Version 1)
Quarter: 2022Q4

REPORT INFORMATION
  Report Type: Spontaneous
  Country: US (occurrence: US)
  Receive Date: 20221014
  Receipt Date: 20221014
  Transmission Date: 20230113
  Serious: Yes (Other)
  Sender: FDA-Public Use
  Company Number: US-SEATTLE GENETICS-2022SGN08598

PATIENT
  Sex: Female

DRUGS (8)
  1. TUKYSA [Suspect]
     Active Substance: TUCATINIB
     Indication: Product used for unknown indication
     Dosage: 300 MG, BID EVERY 21 DAYS
     Route: 065
  2. CAPECITABINE [Suspect]
     Active Substance: CAPECITABINE
     Indication: Product used for unknown indication
     Dosage: 300 MG, BID EVERY 14 DAYS
     Route: 065
  3. CAPECITABINE [Suspect]
     Active Substance: CAPECITABINE
     Dosage: 500 MG, BID EVERY 14 DAYS
     Route: 065
  4. TRASTUZUMAB [Suspect]
     Active Substance: TRASTUZUMAB
     Indication: Product used for unknown indication
     Dosage: ONE INJECTION VIA STOMACH EVERY 3RD WEEK
     Route: 058
  5. LEVETIRACETAM [Concomitant]
     Active Substance: LEVETIRACETAM
     Dosage: 500 MG, ONE TABLET TWICE A DAY
     Route: 065
  6. LETROZOLE [Concomitant]
     Active Substance: LETROZOLE
     Dosage: 2.5 MG ONE TABLET ONCE A DAY
     Route: 065
  7. LANSOPRAZOLE [Concomitant]
     Active Substance: LANSOPRAZOLE
     Dosage: 30 MG ONE TABLET ONCE A DAY
     Route: 048
  8. LOPERAMIDE HYDROCHLORIDE [Concomitant]
     Active Substance: LOPERAMIDE HYDROCHLORIDE
     Dosage: 2 MG AS NEEDED
     Route: 065

REACTIONS (9)
  - Seizure [Unknown]
  - Cerebral haemorrhage [Unknown]
  - Brain operation [Unknown]
  - Discouragement [Unknown]
  - Agitated depression [Unknown]
  - Gait inability [Unknown]
  - Dysstasia [Unknown]
  - Coordination abnormal [Unknown]
  - Loss of personal independence in daily activities [Unknown]
